FAERS Safety Report 16909611 (Version 5)
Quarter: 2021Q1

REPORT INFORMATION
  Report Type: Report from Study
  Country: ID (occurrence: ID)
  Receive Date: 20191011
  Receipt Date: 20210121
  Transmission Date: 20210419
  Serious: Yes (Death, Hospitalization, Disabling, Other)
  Sender: FDA-Public Use
  Company Number: ID-ASTRAZENECA-2019SF43635

PATIENT
  Age: 18960 Day
  Sex: Female

DRUGS (1)
  1. TAGRISSO [Suspect]
     Active Substance: OSIMERTINIB
     Indication: NON-SMALL CELL LUNG CANCER
     Route: 048
     Dates: start: 20190822, end: 20190925

REACTIONS (12)
  - Blood urine present [Fatal]
  - Head discomfort [Unknown]
  - Condition aggravated [Fatal]
  - Asthenia [Unknown]
  - Lung disorder [Fatal]
  - Respiratory failure [Fatal]
  - Pain [Recovering/Resolving]
  - Platelet count decreased [Fatal]
  - Malaise [Unknown]
  - Decreased appetite [Unknown]
  - Haemorrhagic stroke [Fatal]
  - Aphasia [Fatal]

NARRATIVE: CASE EVENT DATE: 20190925
